FAERS Safety Report 7026355-X (Version None)
Quarter: 2010Q4

REPORT INFORMATION
  Report Type: 
  Country: None (occurrence: None)
  Receive Date: 20101004
  Receipt Date: 20100923
  Transmission Date: 20110411
  Serious: Yes (Hospitalization)
  Sender: FDA-Public Use
  Company Number: US-ELI_LILLY_AND_COMPANY-US201009005300

PATIENT
  Age: 71 Year
  Sex: Male

DRUGS (7)
  1. HUMALOG MIX 75/25 [Suspect]
     Indication: DIABETES MELLITUS
     Dosage: 40 U, EACH MORNING
  2. HUMALOG MIX 75/25 [Suspect]
     Dosage: 42 U, EACH EVENING
  3. HUMALOG MIX 75/25 [Suspect]
     Dosage: 40 U, EACH MORNING
  4. HUMALOG MIX 75/25 [Suspect]
     Dosage: 42 U, EACH EVENING
  5. HUMULIN R [Suspect]
     Indication: DIABETES MELLITUS
     Dosage: UNK, AS NEEDED
  6. LANTUS [Concomitant]
  7. IMMUNOSUPPRESSANTS [Concomitant]
     Indication: RENAL TRANSPLANT

REACTIONS (7)
  - BLOOD GLUCOSE INCREASED [None]
  - CATARACT [None]
  - DRUG INEFFECTIVE [None]
  - GLAUCOMA [None]
  - MASTOIDITIS [None]
  - RENAL FAILURE [None]
  - RETINAL DISORDER [None]
